FAERS Safety Report 7638942-6 (Version None)
Quarter: 2011Q3

REPORT INFORMATION
  Report Type: 
  Country: None (occurrence: None)
  Receive Date: 20110727
  Receipt Date: 20110718
  Transmission Date: 20111222
  Serious: Yes (Other)
  Sender: FDA-Public Use
  Company Number: EE-BAXTER-2011BH023208

PATIENT
  Age: 10 Month
  Sex: Male
  Weight: 9 kg

DRUGS (1)
  1. GAMMAGARD LIQUID [Suspect]
     Indication: THROMBOCYTOPENIA
     Route: 042
     Dates: start: 20110625, end: 20110625

REACTIONS (6)
  - CYANOSIS [None]
  - LIVEDO RETICULARIS [None]
  - HOT FLUSH [None]
  - PERIPHERAL COLDNESS [None]
  - PYREXIA [None]
  - TREMOR [None]
